FAERS Safety Report 4340020-9 (Version None)
Quarter: 2004Q2

REPORT INFORMATION
  Report Type: 
  Country: None (occurrence: None)
  Receive Date: 20040412
  Receipt Date: 20040325
  Transmission Date: 20050107
  Serious: Yes (Other)
  Sender: FDA-Public Use
  Company Number: 205767

PATIENT
  Sex: Female

DRUGS (2)
  1. HERCEPTIN [Suspect]
     Dosage: INTRAVENOUS
     Route: 042
     Dates: start: 20011101
  2. HERCEPTIN [Suspect]
     Dosage: INTRAVENOUS
     Route: 042
     Dates: start: 20030701

REACTIONS (4)
  - GASTROINTESTINAL HAEMORRHAGE [None]
  - IRON DEFICIENCY [None]
  - THROMBOCYTHAEMIA [None]
  - THROMBOCYTOPENIA [None]
